FAERS Safety Report 17557383 (Version 2)
Quarter: 2020Q1

REPORT INFORMATION
  Report Type: Spontaneous
  Country: US (occurrence: US)
  Receive Date: 20200318
  Receipt Date: 20200326
  Transmission Date: 20200409
  Serious: No
  Sender: FDA-Public Use
  Company Number: US-IPSEN BIOPHARMACEUTICALS, INC.-2020-03645

PATIENT
  Age: 77 Year
  Sex: Male

DRUGS (2)
  1. SOMATULINE DEPOT [Suspect]
     Active Substance: LANREOTIDE ACETATE
     Indication: NEUROENDOCRINE TUMOUR
     Route: 058
     Dates: start: 201705
  2. SANDOSTATIN [Concomitant]
     Active Substance: OCTREOTIDE ACETATE
     Indication: NEUROENDOCRINE TUMOUR
     Dosage: 30 MG SHOTS
     Dates: start: 201111, end: 201705

REACTIONS (6)
  - Injection site nodule [Unknown]
  - Injection site pain [Unknown]
  - Incorrect drug administration rate [Unknown]
  - Blood glucose increased [Unknown]
  - Rubber sensitivity [Unknown]
  - Injection site haemorrhage [Unknown]
